FAERS Safety Report 4754413-9 (Version None)
Quarter: 2005Q3

REPORT INFORMATION
  Report Type: 
  Country: None (occurrence: None)
  Receive Date: 20050829
  Receipt Date: 20050809
  Transmission Date: 20060218
  Serious: Yes (Hospitalization)
  Sender: FDA-Public Use
  Company Number: US-BOEHRINGER INGELHEIM PHARMACEUTICALS, INC.-2005-BP-13657BP

PATIENT
  Sex: Female
  Weight: 71.4 kg

DRUGS (4)
  1. TIPRANAVIR / RITONAVIR CAPSULES [Suspect]
     Indication: HIV INFECTION
     Dosage: TPV/R: 500/200MG
     Route: 048
     Dates: start: 20031013, end: 20041009
  2. TENOFOVIR [Suspect]
     Indication: HIV INFECTION
     Dosage: 1
     Route: 048
     Dates: start: 20030321, end: 20041004
  3. FUZEON [Suspect]
     Indication: HIV INFECTION
     Route: 030
     Dates: start: 20031013, end: 20050729
  4. TRUVADA [Concomitant]
     Indication: HIV INFECTION
     Dosage: 1 DAILY
     Route: 048
     Dates: start: 20041004, end: 20050729

REACTIONS (1)
  - RENAL FAILURE ACUTE [None]
